FAERS Safety Report 6679352-8 (Version None)
Quarter: 2010Q2

REPORT INFORMATION
  Report Type: 
  Country: None (occurrence: None)
  Receive Date: 20100413
  Receipt Date: 20100401
  Transmission Date: 20101027
  Serious: Yes (Hospitalization)
  Sender: FDA-Public Use
  Company Number: US-JNJCH-2010008348

PATIENT
  Age: 43 Year
  Sex: Female
  Weight: 61.2 kg

DRUGS (4)
  1. ROLAIDS MULTI-SYMPTOM [Suspect]
     Indication: DYSPEPSIA
     Dosage: TEXT:TWO TABLETS TWICE DAILY
     Route: 048
     Dates: start: 20091101, end: 20100401
  2. PRILOSEC [Concomitant]
     Indication: DYSPEPSIA
     Dosage: TEXT:1 DAILY
     Route: 065
  3. VICODIN [Concomitant]
     Indication: PAIN
     Dosage: TEXT:UNKNOWN
     Route: 065
  4. ZOFRAN [Concomitant]
     Indication: NAUSEA
     Dosage: TEXT:AS NEEDED
     Route: 065

REACTIONS (8)
  - ABDOMINAL DISTENSION [None]
  - ABDOMINAL PAIN [None]
  - BOWEL MOVEMENT IRREGULARITY [None]
  - CONDITION AGGRAVATED [None]
  - DIARRHOEA [None]
  - DYSPEPSIA [None]
  - FLATULENCE [None]
  - NAUSEA [None]
